FAERS Safety Report 18871788 (Version 4)
Quarter: 2023Q4

REPORT INFORMATION
  Report Type: Report from Study
  Country: RU (occurrence: RU)
  Receive Date: 20210210
  Receipt Date: 20231004
  Transmission Date: 20240110
  Serious: Yes (Death)
  Sender: FDA-Public Use
  Company Number: RU-ABBVIE-20K-251-3669705-00

PATIENT
  Age: 61 Year
  Sex: Female
  Weight: 65 kg

DRUGS (36)
  1. VENCLEXTA [Suspect]
     Active Substance: VENETOCLAX
     Indication: Acute myeloid leukaemia
     Dosage: 400 MILLIGRAM
     Route: 048
     Dates: start: 20201016
  2. ETHAMSYLATE [Concomitant]
     Active Substance: ETHAMSYLATE
     Indication: Coagulopathy
     Route: 042
     Dates: start: 20201014, end: 20201130
  3. DACOGEN [Concomitant]
     Active Substance: DECITABINE
     Indication: Acute myeloid leukaemia
     Dosage: 20 MILLIGRAM
     Dates: start: 20201016, end: 20201020
  4. VICASOL [Concomitant]
     Indication: Coagulopathy
     Route: 042
     Dates: start: 20201014, end: 20201023
  5. VICASOL [Concomitant]
     Indication: Coagulopathy
     Route: 042
     Dates: start: 20201026, end: 20201120
  6. VICASOL [Concomitant]
     Indication: Coagulopathy
     Route: 042
     Dates: start: 20201118, end: 20201119
  7. VICASOL [Concomitant]
     Indication: Coagulopathy
     Route: 042
     Dates: start: 20201125, end: 20201130
  8. ONDANSETRON HYDROCHLORIDE [Concomitant]
     Active Substance: ONDANSETRON HYDROCHLORIDE
     Indication: Product used for unknown indication
     Dosage: 8 MILLIGRAM
     Route: 042
     Dates: start: 20201016, end: 20201020
  9. ASCORBIC ACID;RUTOSIDE [Concomitant]
     Indication: Coagulopathy
     Dosage: TIME INTERVAL: 0.33333333 DAYS
     Route: 048
     Dates: start: 20201014, end: 20201130
  10. SODIUM CHLORIDE [Concomitant]
     Active Substance: SODIUM CHLORIDE
     Indication: Product used for unknown indication
     Dosage: 600 MILLILITER? 0.9%
     Route: 042
     Dates: start: 20201014, end: 20201130
  11. POTASSIUM CHLORIDE [Concomitant]
     Active Substance: POTASSIUM CHLORIDE
     Indication: Product used for unknown indication
     Dosage: 20 MILLILITER
     Route: 042
     Dates: start: 20201015, end: 20201130
  12. MELDONIUM [Concomitant]
     Active Substance: MELDONIUM
     Indication: Product used for unknown indication
     Dosage: 5 MILLILITER
     Route: 042
     Dates: start: 20201015, end: 20201130
  13. DEXTROSE [Concomitant]
     Active Substance: DEXTROSE\DEXTROSE MONOHYDRATE
     Indication: Product used for unknown indication
     Dosage: 500 MILLILITER?5%
     Route: 042
     Dates: start: 20201015, end: 20201130
  14. MAGNESIUM SULFATE [Concomitant]
     Active Substance: MAGNESIUM SULFATE
     Indication: Product used for unknown indication
     Dosage: 4 MILLILITER
     Route: 042
     Dates: start: 20201015, end: 20201130
  15. ACYCLOVIR [Concomitant]
     Active Substance: ACYCLOVIR
     Indication: Epstein-Barr virus infection
     Dosage: TIME INTERVAL: 0.33333333 DAYS
     Route: 048
     Dates: start: 20201113, end: 20201127
  16. ACYCLOVIR [Concomitant]
     Active Substance: ACYCLOVIR
     Indication: Epstein-Barr virus infection
     Dosage: TIME INTERVAL: 0.33333333 DAYS
     Route: 048
     Dates: start: 20201013, end: 20201016
  17. ACYCLOVIR [Concomitant]
     Active Substance: ACYCLOVIR
     Indication: Epstein-Barr virus infection
     Route: 048
     Dates: start: 20201127, end: 20201201
  18. VALTREX [Concomitant]
     Active Substance: VALACYCLOVIR HYDROCHLORIDE
     Indication: Epstein-Barr virus infection
     Route: 048
     Dates: start: 20201016, end: 20201113
  19. CIPROFLOXACIN [Concomitant]
     Active Substance: CIPROFLOXACIN
     Indication: Product used for unknown indication
     Route: 048
     Dates: start: 20201013, end: 20201013
  20. CIPROFLOXACIN [Concomitant]
     Active Substance: CIPROFLOXACIN
     Indication: Product used for unknown indication
     Route: 048
     Dates: start: 20201013, end: 20201013
  21. LEVOFLOXACIN [Concomitant]
     Active Substance: LEVOFLOXACIN
     Indication: Product used for unknown indication
     Route: 048
     Dates: start: 20201014, end: 20201117
  22. FLUCONAZOLE [Concomitant]
     Active Substance: FLUCONAZOLE
     Indication: Product used for unknown indication
     Dosage: 150 MILLIGRAM
     Route: 048
     Dates: start: 20201014, end: 20201123
  23. FLUCONAZOLE [Concomitant]
     Active Substance: FLUCONAZOLE
     Indication: Product used for unknown indication
     Dosage: 150 MILLIGRAM
     Route: 048
     Dates: start: 20201014, end: 20201123
  24. ALLOPURINOL [Concomitant]
     Active Substance: ALLOPURINOL
     Indication: Product used for unknown indication
     Dosage: TIME INTERVAL: 0.33333333 DAYS
     Route: 048
     Dates: start: 20201013, end: 20201130
  25. PIRACETAM [Concomitant]
     Active Substance: PIRACETAM
     Indication: Product used for unknown indication
     Dosage: 15 MILLILITER
     Route: 042
     Dates: start: 20201015, end: 20201130
  26. PIRACETAM [Concomitant]
     Active Substance: PIRACETAM
     Indication: Product used for unknown indication
     Dosage: 15 MILLILITER
     Route: 042
     Dates: start: 20201015, end: 20201130
  27. Almagel a [Concomitant]
     Indication: Product used for unknown indication
     Dosage: TIME INTERVAL: 0.33333333 DAYS
     Route: 048
     Dates: start: 20201016, end: 20201117
  28. INOSINE [Concomitant]
     Active Substance: INOSINE
     Indication: Product used for unknown indication
     Dosage: 10 MILLILITER
     Route: 042
     Dates: start: 20201015, end: 20201123
  29. Calcii chloridum [Concomitant]
     Indication: Coagulopathy
     Dosage: TIME INTERVAL: 1 TOTAL: 10%
     Route: 042
     Dates: start: 20201014, end: 20201014
  30. Calcii chloridum [Concomitant]
     Indication: Coagulopathy
     Dosage: 20 MILLILITER?10%
     Route: 042
     Dates: start: 20201020, end: 20201021
  31. TRANEXAMIC ACID [Concomitant]
     Active Substance: TRANEXAMIC ACID
     Indication: Purpura
     Route: 042
     Dates: start: 20201014, end: 20201019
  32. TRANEXAMIC ACID [Concomitant]
     Active Substance: TRANEXAMIC ACID
     Indication: Purpura
     Route: 042
     Dates: start: 20201104, end: 20201116
  33. IRON ISOMALTOSIDE 1000 [Concomitant]
     Active Substance: IRON ISOMALTOSIDE 1000
     Indication: Anaemia of chronic disease
     Route: 042
     Dates: start: 20201107, end: 20201107
  34. IMBIOGLOBULINE [Concomitant]
     Indication: Purpura
     Dates: start: 20201111, end: 20201113
  35. IMBIOGLOBULINE [Concomitant]
     Indication: Purpura
     Route: 042
     Dates: start: 20201127, end: 20201130
  36. BIFIDOBACTERIUM LONGUM [Concomitant]
     Active Substance: BIFIDOBACTERIUM LONGUM
     Indication: Product used for unknown indication
     Route: 048
     Dates: start: 20201120, end: 20201130

REACTIONS (7)
  - COVID-19 [Fatal]
  - Pharyngitis [Recovered/Resolved]
  - Alanine aminotransferase increased [Recovered/Resolved]
  - Aspartate aminotransferase increased [Recovered/Resolved]
  - Neutrophil count decreased [Recovered/Resolved]
  - Anaemia [Not Recovered/Not Resolved]
  - Thrombocytopenia [Unknown]

NARRATIVE: CASE EVENT DATE: 20201017
